FAERS Safety Report 9008462 (Version 1)
Quarter: 2012Q4

REPORT INFORMATION
  Report Type: Spontaneous
  Country: US (occurrence: None)
  Receive Date: 20121227
  Receipt Date: 20121227
  Transmission Date: 20130627
  Serious: Yes (Death)
  Sender: FDA-Public Use
  Company Number: 2012SP004923

PATIENT
  Age: 78 Year
  Sex: Male
  Weight: 76.82 kg

DRUGS (1)
  1. FLUOROURACIL [Suspect]
     Indication: COLON CANCER METASTATIC
     Dosage: 2400 MG/M**2;QOW; IV
     Route: 042

REACTIONS (3)
  - Syncope [None]
  - Fall [None]
  - Balance disorder [None]
